FAERS Safety Report 9872019 (Version 1)
Quarter: 2014Q1

REPORT INFORMATION
  Report Type: Spontaneous
  Country: US (occurrence: US)
  Receive Date: 20140205
  Receipt Date: 20140205
  Transmission Date: 20141002
  Serious: No
  Sender: FDA-Public Use
  Company Number: US-ALLERGAN-1117185US

PATIENT
  Age: 66 Year
  Sex: Female

DRUGS (5)
  1. BOTOX COSMETIC [Suspect]
     Indication: SKIN WRINKLING
     Dosage: UNK
     Route: 030
     Dates: start: 201011, end: 201011
  2. BOTOX COSMETIC [Suspect]
     Indication: SKIN WRINKLING
     Dosage: 37.5 UNITS, SINGLE
     Route: 030
     Dates: start: 20130513, end: 20130513
  3. LOSARTAN [Concomitant]
     Indication: HYPERTENSION
     Dosage: 25 MG, UNK
     Route: 048
  4. VITAMINS [Concomitant]
     Indication: SUPPLEMENTATION THERAPY
  5. RADIESSE [Concomitant]
     Indication: SKIN WRINKLING
     Dosage: UNK
     Dates: start: 20130513, end: 20130513

REACTIONS (11)
  - Metamorphopsia [Not Recovered/Not Resolved]
  - Muscle twitching [Not Recovered/Not Resolved]
  - Swelling [Recovered/Resolved]
  - Eyelid sensory disorder [Not Recovered/Not Resolved]
  - Periorbital oedema [Unknown]
  - Facial paresis [Recovering/Resolving]
  - Injection site pain [Recovered/Resolved]
  - Skin hyperpigmentation [Unknown]
  - Eyelids pruritus [Unknown]
  - Throat irritation [Unknown]
  - Dysphonia [Unknown]
